FAERS Safety Report 25966474 (Version 1)
Quarter: 2025Q4

REPORT INFORMATION
  Report Type: Spontaneous
  Country: US (occurrence: US)
  Receive Date: 20251028
  Receipt Date: 20251028
  Transmission Date: 20260117
  Serious: No
  Sender: RANBAXY
  Company Number: US-SUN PHARMACEUTICAL INDUSTRIES LTD-2025R1-528532

PATIENT
  Sex: Female

DRUGS (1)
  1. PSEUDOEPHEDRINE [Suspect]
     Active Substance: PSEUDOEPHEDRINE
     Indication: COVID-19
     Dosage: UNK
     Route: 065

REACTIONS (2)
  - Illness [Unknown]
  - Gastrointestinal disorder [Unknown]
